FAERS Safety Report 4877642-2 (Version None)
Quarter: 2006Q1

REPORT INFORMATION
  Report Type: 
  Country: None (occurrence: None)
  Receive Date: 20060109
  Receipt Date: 20051229
  Transmission Date: 20060701
  Serious: Yes (Other)
  Sender: FDA-Public Use
  Company Number: 2004033553

PATIENT
  Age: 23 Year
  Sex: Female
  Weight: 52 kg

DRUGS (15)
  1. ZOLOFT [Suspect]
     Indication: DEPRESSION
     Dosage: 50 MG (50 MG, 1 IN 1 D), ORAL
     Route: 048
     Dates: start: 20000101
  2. PROVERA [Suspect]
     Indication: UTERINE HAEMORRHAGE
     Dosage: 20 MG (10 MG, 1 IN 1 D), ORAL
     Route: 048
     Dates: start: 20050810
  3. TINIDAZOLE/TIOCONAZOLE (TICOXONAZOLE, TINIDAZOLE) [Suspect]
     Indication: VAGINITIS BACTERIAL
     Dosage: VAGINAL
     Route: 067
     Dates: start: 20050825
  4. CLONAZEPAM [Suspect]
     Indication: BIPOLAR DISORDER
     Dosage: 3 MG (3 MG, 1 IN 1 D), ORAL
     Route: 048
     Dates: start: 20050803
  5. DIANE (CYPROTERONE ACETATE, ETHINYLESTRADIOL) [Suspect]
     Indication: ORAL CONTRACEPTION
     Dosage: (DAILY), ORAL
     Route: 048
     Dates: start: 20051103
  6. SYNTHROID [Concomitant]
  7. PIROXICAM (POIROXICAM) [Concomitant]
  8. ROHYPNOL (FLUNITRAZEPAM) [Concomitant]
  9. L-LYSINE (LYSINE) [Concomitant]
  10. AMPLICTIL (CHLORPROMAZINE) [Concomitant]
  11. HERBAL PREPARATION (HERBAL PREPARATION) [Concomitant]
  12. BETAGAN [Concomitant]
  13. ALL OTHER THERAPEUTIC PRODUCTS [Concomitant]
  14. MIDAZOLAM HCL [Concomitant]
  15. VITAMINS        (VITAMINS) [Concomitant]

REACTIONS (38)
  - ABDOMINAL PAIN [None]
  - ABORTION [None]
  - ALCOHOLISM [None]
  - AMENORRHOEA [None]
  - ANOREXIA [None]
  - ANXIETY [None]
  - BIPOLAR DISORDER [None]
  - BLOOD PRESSURE DECREASED [None]
  - DEPRESSION [None]
  - DISEASE RECURRENCE [None]
  - DIZZINESS [None]
  - DRUG DOSE OMISSION [None]
  - DYSKINESIA [None]
  - EUPHORIC MOOD [None]
  - EYELID PTOSIS [None]
  - FLATULENCE [None]
  - GALACTORRHOEA [None]
  - HAEMORRHAGE [None]
  - HEADACHE [None]
  - HORMONE LEVEL ABNORMAL [None]
  - INSOMNIA [None]
  - MANIA [None]
  - MENSTRUATION IRREGULAR [None]
  - MOOD ALTERED [None]
  - MUSCULOSKELETAL PAIN [None]
  - NAUSEA [None]
  - RASH MACULAR [None]
  - SEBORRHOEIC DERMATITIS [None]
  - SERRATIA INFECTION [None]
  - SOMNOLENCE [None]
  - SUICIDE ATTEMPT [None]
  - TACHYCARDIA [None]
  - TREMOR [None]
  - UTERINE HAEMORRHAGE [None]
  - VAGINAL HAEMORRHAGE [None]
  - VAGINAL INFECTION [None]
  - VAGINITIS BACTERIAL [None]
  - WEIGHT DECREASED [None]
